FAERS Safety Report 5223109-1 (Version None)
Quarter: 2007Q1

REPORT INFORMATION
  Report Type: 
  Country: None (occurrence: None)
  Receive Date: 20070122
  Receipt Date: 20070111
  Transmission Date: 20070707
  Serious: Yes (Hospitalization)
  Sender: FDA-Public Use
  Company Number: GBWYE442421FEB05

PATIENT
  Age: 63 Year
  Sex: Female

DRUGS (10)
  1. NEORAL [Suspect]
     Indication: IMMUNOSUPPRESSION
     Dosage: 50 MG ORAL
     Route: 048
     Dates: start: 19980613, end: 20050207
  2. FUROSEMIDE [Concomitant]
  3. MYCOPHENOLATE MOFETIL [Concomitant]
  4. TRAVATAN [Concomitant]
  5. RAMIPRIL [Concomitant]
  6. ATENOLOL [Concomitant]
  7. PRAVASTATIN [Concomitant]
  8. OMEPRAZOLE [Concomitant]
  9. ISOSORBIDE MONONITRATE [Concomitant]
  10. GABAPENTIN [Concomitant]

REACTIONS (12)
  - ANAEMIA [None]
  - BLOOD CALCIUM DECREASED [None]
  - CHRONIC ALLOGRAFT NEPHROPATHY [None]
  - DEHYDRATION [None]
  - DIARRHOEA [None]
  - DYSPNOEA [None]
  - HEADACHE [None]
  - HYPOKALAEMIA [None]
  - LOWER RESPIRATORY TRACT INFECTION [None]
  - OEDEMA [None]
  - SYNCOPE [None]
  - WHITE BLOOD CELL COUNT DECREASED [None]
